FAERS Safety Report 18435073 (Version 1)
Quarter: 2020Q4

REPORT INFORMATION
  Report Type: Spontaneous
  Country: BR (occurrence: BR)
  Receive Date: 20201028
  Receipt Date: 20201028
  Transmission Date: 20210114
  Serious: Yes (Other)
  Sender: FDA-Public Use
  Company Number: NVSC2020BR280624

PATIENT
  Age: 61 Year
  Sex: Female

DRUGS (3)
  1. FEMARA [Suspect]
     Active Substance: LETROZOLE
     Indication: BREAST CANCER
     Dosage: 1 DF, QD (WITHOUT BREAKS)
     Route: 048
     Dates: start: 20190107
  2. TAMOXIFEN [Concomitant]
     Active Substance: TAMOXIFEN
     Indication: PRODUCT USED FOR UNKNOWN INDICATION
     Dosage: UNK
     Route: 065
  3. PALBOCICLIB [Concomitant]
     Active Substance: PALBOCICLIB
     Indication: BREAST CANCER
     Dosage: 1 DF, QD (AFTER EATING, DURING 21 CONSECUTIVES. AFTER, TAKE A 7-DAY BREAK TO RESUME A NEW CYCLE)
     Route: 048
     Dates: start: 20190107

REACTIONS (10)
  - Thyroid mass [Unknown]
  - Colon adenoma [Unknown]
  - Concomitant disease progression [Unknown]
  - Neoplasm [Unknown]
  - Neutropenia [Unknown]
  - Large intestine polyp [Unknown]
  - Lymphadenopathy [Unknown]
  - Chest injury [Unknown]
  - Lung opacity [Unknown]
  - Rectal polyp [Unknown]

NARRATIVE: CASE EVENT DATE: 20191111
